FAERS Safety Report 25221375 (Version 1)
Quarter: 2025Q2

REPORT INFORMATION
  Report Type: Other
  Country: US (occurrence: US)
  Receive Date: 20250421
  Receipt Date: 20250421
  Transmission Date: 20250717
  Serious: Yes (Other)
  Sender: Meaningful Beauty
  Company Number: 2601198

PATIENT

DRUGS (7)
  1. AVOBENZONE\HOMOSALATE\OCTISALATE\OXYBENZONE [Suspect]
     Active Substance: AVOBENZONE\HOMOSALATE\OCTISALATE\OXYBENZONE
  2. Meaningful Beauty Skin Brightening Dcollete and Neck Treatment SPF 15 [Concomitant]
  3. Meaningful Beauty Age Recovery Night Creme with Melon [Concomitant]
  4. COSMETICS [Concomitant]
     Active Substance: COSMETICS
  5. Meaningful Beauty Lifting Eye Cream Advanced Formula [Concomitant]
  6. Meaningful Beauty Youth Activating Melon Serum [Concomitant]
  7. Meaningful Beauty Wrinkle Smoothing Capsules [Concomitant]

REACTIONS (1)
  - Hypersensitivity [Recovered/Resolved]

NARRATIVE: CASE EVENT DATE: 20250404
